FAERS Safety Report 6793923-X (Version None)
Quarter: 2010Q2

REPORT INFORMATION
  Report Type: 
  Country: None (occurrence: None)
  Receive Date: 20100624
  Receipt Date: 20061114
  Transmission Date: 20101027
  Serious: No
  Sender: FDA-Public Use
  Company Number: US-PFIZER INC-23100361

PATIENT
  Age: 53 Year
  Sex: Female

DRUGS (6)
  1. ARGATROBAN [Suspect]
     Indication: HAEMODIALYSIS
  2. EPOGEN [Concomitant]
  3. PRINIVIL [Concomitant]
  4. TOPROL-XL [Concomitant]
  5. ZOCOR [Concomitant]
  6. CALCIUM CARBONATE [Concomitant]

REACTIONS (1)
  - THROMBOSIS IN DEVICE [None]
